FAERS Safety Report 12762065 (Version 1)
Quarter: 2016Q3

REPORT INFORMATION
  Report Type: Spontaneous
  Country: GR (occurrence: GR)
  Receive Date: 20160920
  Receipt Date: 20160920
  Transmission Date: 20161109
  Serious: Yes (Other)
  Sender: FDA-Public Use
  Company Number: GR-ASTELLAS-2016US035848

PATIENT
  Age: 75 Year
  Sex: Female

DRUGS (2)
  1. BETMIGA [Suspect]
     Active Substance: MIRABEGRON
     Indication: PRODUCT USED FOR UNKNOWN INDICATION
     Route: 048
  2. BETMIGA [Suspect]
     Active Substance: MIRABEGRON
     Route: 048

REACTIONS (2)
  - Syncope [Unknown]
  - Blood pressure increased [Unknown]
